FAERS Safety Report 6757555-1 (Version None)
Quarter: 2010Q2

REPORT INFORMATION
  Report Type: 
  Country: None (occurrence: None)
  Receive Date: 20100607
  Receipt Date: 20100526
  Transmission Date: 20101027
  Serious: Yes (Hospitalization)
  Sender: FDA-Public Use
  Company Number: ES-ELI_LILLY_AND_COMPANY-ES201005005519

PATIENT
  Sex: Female
  Weight: 83 kg

DRUGS (6)
  1. EXENATIDE [Suspect]
     Indication: TYPE 2 DIABETES MELLITUS
     Dosage: 10 UG, 2/D
     Route: 065
     Dates: start: 20100128
  2. INSULIN GLARGINE [Suspect]
     Indication: TYPE 2 DIABETES MELLITUS
     Dosage: 46 U, EACH EVENING
     Dates: start: 20090109
  3. METFORMIN [Suspect]
     Indication: TYPE 2 DIABETES MELLITUS
     Dosage: 2550 MG, DAILY (1/D)
     Dates: start: 20050101
  4. IRBESARTAN [Concomitant]
     Indication: HYPERTENSION
     Dosage: 75 MG, UNK
     Dates: start: 20080101
  5. FENOFIBRAT [Concomitant]
     Indication: DYSLIPIDAEMIA
     Dosage: 160 MG, UNK
     Dates: start: 20090901
  6. EZETIMIBE [Concomitant]
     Indication: DYSLIPIDAEMIA
     Dosage: 10 MG, UNK
     Dates: start: 20080101

REACTIONS (2)
  - CALCULUS URINARY [None]
  - PYELONEPHRITIS [None]
